FAERS Safety Report 15897426 (Version 4)
Quarter: 2020Q2

REPORT INFORMATION
  Report Type: Report from Study
  Country: US (occurrence: US)
  Receive Date: 20190131
  Receipt Date: 20200617
  Transmission Date: 20200713
  Serious: No
  Sender: FDA-Public Use
  Company Number: PHEH2019US004364

PATIENT
  Age: 37 Year
  Sex: Female

DRUGS (1)
  1. GILENYA [Suspect]
     Active Substance: FINGOLIMOD HYDROCHLORIDE
     Indication: MULTIPLE SCLEROSIS
     Dosage: 0.5 MG, QD
     Route: 048
     Dates: start: 20180806

REACTIONS (10)
  - Pruritus [Unknown]
  - Nightmare [Unknown]
  - Rash [Unknown]
  - Fear [Unknown]
  - Dyspnoea [Unknown]
  - Seasonal affective disorder [Unknown]
  - Musculoskeletal stiffness [Unknown]
  - Malaise [Unknown]
  - Feeling abnormal [Unknown]
  - Herpes zoster [Unknown]

NARRATIVE: CASE EVENT DATE: 20190113
